FAERS Safety Report 9511613 (Version 2)
Quarter: 2013Q4

REPORT INFORMATION
  Report Type: Report from Study
  Country: BR (occurrence: BR)
  Receive Date: 20130910
  Receipt Date: 20131113
  Transmission Date: 20140711
  Serious: Yes (Death, Hospitalization, Other)
  Sender: FDA-Public Use
  Company Number: PHHY2013BR098926

PATIENT
  Age: 84 Year
  Sex: Female

DRUGS (1)
  1. DIOVAN [Suspect]
     Indication: HYPERTENSION
     Dosage: 1 DF, (80 MG) A DAY
     Route: 048

REACTIONS (4)
  - Renal disorder [Fatal]
  - Liver disorder [Fatal]
  - Dysuria [Fatal]
  - Cardiopulmonary failure [Fatal]
